FAERS Safety Report 15426121 (Version 1)
Quarter: 2018Q3

REPORT INFORMATION
  Report Type: Spontaneous
  Country: US (occurrence: US)
  Receive Date: 20180925
  Receipt Date: 20180925
  Transmission Date: 20181010
  Serious: Yes (Hospitalization)
  Sender: FDA-Public Use
  Company Number: US-RISING PHARMACEUTICALS, INC.-2018RIS00420

PATIENT
  Age: 48 Year
  Sex: Female

DRUGS (4)
  1. GLUCOSAMINES [Concomitant]
     Route: 065
  2. DICLOFENAC [Suspect]
     Active Substance: DICLOFENAC
     Dosage: 50 MG, 1X/DAY
     Route: 065
  3. METFORMIN [Concomitant]
     Active Substance: METFORMIN HYDROCHLORIDE
     Dosage: 500 MG, 2X/DAY
     Route: 065
  4. GARLIC. [Concomitant]
     Active Substance: GARLIC
     Route: 065

REACTIONS (2)
  - Hepatitis [Recovered/Resolved]
  - Drug-induced liver injury [Recovered/Resolved]
